FAERS Safety Report 6057196-8 (Version None)
Quarter: 2009Q1

REPORT INFORMATION
  Report Type: 
  Country: None (occurrence: None)
  Receive Date: 20090129
  Receipt Date: 20080227
  Transmission Date: 20090719
  Serious: No
  Sender: FDA-Public Use
  Company Number: A0713596A

PATIENT
  Age: 85 Year
  Sex: Female
  Weight: 53.2 kg

DRUGS (2)
  1. WELLBUTRIN [Suspect]
     Dosage: 150MG PER DAY
     Route: 048
     Dates: start: 20000101, end: 20080213
  2. ADDERALL XR 20 [Suspect]
     Dosage: 20MG PER DAY
     Route: 048
     Dates: start: 20080209

REACTIONS (2)
  - INSOMNIA [None]
  - TINNITUS [None]
